FAERS Safety Report 5669071-9 (Version None)
Quarter: 2008Q1

REPORT INFORMATION
  Report Type: 
  Country: None (occurrence: None)
  Receive Date: 20080313
  Receipt Date: 20080313
  Transmission Date: 20080703
  Serious: Yes (Other)
  Sender: FDA-Public Use
  Company Number: None

PATIENT
  Age: 29 Year
  Sex: Male
  Weight: 111.1313 kg

DRUGS (1)
  1. XANAX [Suspect]

REACTIONS (3)
  - DEPENDENCE [None]
  - FLAT AFFECT [None]
  - PERSONALITY CHANGE [None]
